FAERS Safety Report 15172208 (Version 1)
Quarter: 2018Q3

REPORT INFORMATION
  Report Type: Spontaneous
  Country: US (occurrence: US)
  Receive Date: 20180622
  Receipt Date: 20180622
  Transmission Date: 20181010
  Serious: Yes (Hospitalization)
  Sender: FDA-Public Use
  Company Number: None

PATIENT
  Age: 54 Year
  Sex: Female
  Weight: 79.7 kg

DRUGS (1)
  1. FEMARA [Suspect]
     Active Substance: LETROZOLE
     Dates: end: 20180610

REACTIONS (4)
  - Faecaloma [None]
  - Small intestinal obstruction [None]
  - Food intolerance [None]
  - Fluid intake reduced [None]

NARRATIVE: CASE EVENT DATE: 20180610
